FAERS Safety Report 8222813-0 (Version None)
Quarter: 2012Q1

REPORT INFORMATION
  Report Type: 
  Country: None (occurrence: None)
  Receive Date: 20120320
  Receipt Date: 20120314
  Transmission Date: 20120608
  Serious: Yes (Death)
  Sender: FDA-Public Use
  Company Number: US-US-EMD SERONO, INC.-7119481

PATIENT

DRUGS (1)
  1. CHORIOGONADOTROPIN ALFA [Suspect]
     Indication: ASSISTED FERTILISATION
     Route: 064

REACTIONS (2)
  - FOETAL EXPOSURE DURING PREGNANCY [None]
  - DEATH NEONATAL [None]
